FAERS Safety Report 7900329-6 (Version None)
Quarter: 2011Q4

REPORT INFORMATION
  Report Type: 
  Country: None (occurrence: None)
  Receive Date: 20111104
  Receipt Date: 20111024
  Transmission Date: 20120403
  Serious: Yes (Hospitalization)
  Sender: FDA-Public Use
  Company Number: 1000024442

PATIENT
  Age: 86 Year
  Sex: Female

DRUGS (5)
  1. DIOVAN [Concomitant]
  2. REMINYL (GALANTAMINE HYDROBROMIDE) (GALANTAMINE HYDROBROMIDE) [Concomitant]
  3. MEMANTINE HYDROCHLORIDE [Suspect]
     Indication: DEMENTIA ALZHEIMER'S TYPE
     Dosage: 5 MG (5 MG, 1 IN 1 D), ORAL
     Route: 048
     Dates: start: 20110907, end: 20110908
  4. ATELEC (CILNIDIPINE) (CILNIDIPINE) [Concomitant]
  5. DEPAS (ETIZOLAM) (ETIZOLAM) [Concomitant]

REACTIONS (9)
  - HEPATIC FUNCTION ABNORMAL [None]
  - BLOOD ALKALINE PHOSPHATASE INCREASED [None]
  - ALANINE AMINOTRANSFERASE INCREASED [None]
  - BLOOD BILIRUBIN INCREASED [None]
  - ASPARTATE AMINOTRANSFERASE INCREASED [None]
  - C-REACTIVE PROTEIN INCREASED [None]
  - PYREXIA [None]
  - SOMNOLENCE [None]
  - GAMMA-GLUTAMYLTRANSFERASE INCREASED [None]
